FAERS Safety Report 15231412 (Version 1)
Quarter: 2018Q3

REPORT INFORMATION
  Report Type: Spontaneous
  Country: GB (occurrence: GB)
  Receive Date: 20180802
  Receipt Date: 20180802
  Transmission Date: 20181010
  Serious: Yes (Other)
  Sender: FDA-Public Use
  Company Number: GB-DRREDDYS-GER/UKI/18/0102687

PATIENT
  Sex: Female

DRUGS (2)
  1. AMLODIPINE [Suspect]
     Active Substance: AMLODIPINE BESYLATE
     Indication: PRODUCT USED FOR UNKNOWN INDICATION
     Dosage: UNK
     Dates: end: 2017
  2. ELIQUIS [Suspect]
     Active Substance: APIXABAN
     Indication: CEREBROVASCULAR ACCIDENT PROPHYLAXIS
     Dosage: 5 MG, BID
     Route: 048
     Dates: start: 2016

REACTIONS (9)
  - Angina pectoris [Unknown]
  - Chest pain [Unknown]
  - Urticaria [Unknown]
  - Anaemia [Unknown]
  - Cough [Unknown]
  - Adverse event [Unknown]
  - Dyspnoea [Unknown]
  - Heart rate irregular [Unknown]
  - Immobile [Unknown]

NARRATIVE: CASE EVENT DATE: 2017
